FAERS Safety Report 6378992-3 (Version None)
Quarter: 2009Q3

REPORT INFORMATION
  Report Type: 
  Country: None (occurrence: None)
  Receive Date: 20090928
  Receipt Date: 20090916
  Transmission Date: 20100115
  Serious: Yes (Other)
  Sender: FDA-Public Use
  Company Number: PHEH2009US11088

PATIENT
  Sex: Female

DRUGS (3)
  1. VIVELLE [Suspect]
     Dosage: 1.0 MG, UNK
     Route: 062
  2. VIVELLE [Suspect]
     Dosage: 1.5 MG, UNK
     Route: 062
  3. VIVELLE-DOT [Suspect]
     Dosage: 0.5 MG, UNK
     Route: 062

REACTIONS (2)
  - HYPERSENSITIVITY [None]
  - HYSTERECTOMY [None]
